FAERS Safety Report 5202390-9 (Version None)
Quarter: 2006Q4

REPORT INFORMATION
  Report Type: 
  Country: None (occurrence: None)
  Receive Date: 20061012
  Receipt Date: 20060717
  Transmission Date: 20070319
  Serious: No
  Sender: FDA-Public Use
  Company Number: 2006S1000137

PATIENT
  Age: 66 Year
  Sex: Female

DRUGS (7)
  1. CUBICIN [Suspect]
     Indication: ENTEROCOCCAL INFECTION
     Dosage: IV
     Route: 042
     Dates: start: 20060628, end: 20060719
  2. CUBICIN [Suspect]
     Indication: OSTEOMYELITIS
     Dosage: IV
     Route: 042
     Dates: start: 20060628, end: 20060719
  3. CUBICIN [Suspect]
     Indication: WOUND INFECTION
     Dosage: IV
     Route: 042
     Dates: start: 20060628, end: 20060719
  4. PREMARIN [Concomitant]
  5. MONTELUKAST [Concomitant]
  6. ANTIHYPERTENSIVE [Concomitant]
  7. METRONIDAZOLE [Concomitant]

REACTIONS (12)
  - ANXIETY [None]
  - CHEST DISCOMFORT [None]
  - DYSPHASIA [None]
  - GLOSSODYNIA [None]
  - HYPERSENSITIVITY [None]
  - LIP PAIN [None]
  - LOCAL SWELLING [None]
  - NECK PAIN [None]
  - OROPHARYNGEAL SWELLING [None]
  - PHARYNGOLARYNGEAL PAIN [None]
  - SWOLLEN TONGUE [None]
  - URTICARIA [None]
